FAERS Safety Report 5258329-3 (Version None)
Quarter: 2007Q1

REPORT INFORMATION
  Report Type: 
  Country: None (occurrence: None)
  Receive Date: 20070308
  Receipt Date: 20070226
  Transmission Date: 20070707
  Serious: Yes (Hospitalization)
  Sender: FDA-Public Use
  Company Number: US-JNJFOC-20061204600

PATIENT
  Sex: Female
  Weight: 79.83 kg

DRUGS (2)
  1. ORTHO EVRA [Suspect]
     Indication: POOR PERSONAL HYGIENE
     Route: 062
  2. LISINOPRIL [Concomitant]
     Indication: HYPERTENSION
     Route: 065

REACTIONS (3)
  - DEEP VEIN THROMBOSIS [None]
  - MENOMETRORRHAGIA [None]
  - PNEUMONIA [None]
